FAERS Safety Report 9784636 (Version 1)
Quarter: 2013Q4

REPORT INFORMATION
  Report Type: Spontaneous
  Country: FR (occurrence: FR)
  Receive Date: 20131226
  Receipt Date: 20131226
  Transmission Date: 20140711
  Serious: Yes (Hospitalization, Other)
  Sender: FDA-Public Use
  Company Number: FR-PFIZER INC-2013363248

PATIENT
  Age: 71 Year
  Sex: Male

DRUGS (7)
  1. ALDACTONE [Suspect]
     Dosage: UNK
     Route: 048
     Dates: start: 20131114, end: 20131121
  2. METFORMIN HCL [Suspect]
     Dosage: UNK
  3. PREVISCAN [Concomitant]
     Dosage: UNK
  4. LASILIX [Concomitant]
     Dosage: UNK
  5. CORDARONE [Concomitant]
     Dosage: UNK
  6. VENTOLINE [Concomitant]
     Dosage: UNK
  7. SPIRIVA [Concomitant]
     Dosage: UNK

REACTIONS (2)
  - Renal failure acute [Recovered/Resolved]
  - Drug level increased [Unknown]
